FAERS Safety Report 7714104-9 (Version None)
Quarter: 2011Q3

REPORT INFORMATION
  Report Type: 
  Country: None (occurrence: None)
  Receive Date: 20110828
  Receipt Date: 20110811
  Transmission Date: 20111222
  Serious: No
  Sender: FDA-Public Use
  Company Number: US-ROXANE LABORATORIES, INC.-2011-RO-01102RO

PATIENT
  Sex: Female

DRUGS (6)
  1. BRIMONIDINE TARTRATE [Concomitant]
     Route: 031
  2. AZATHIOPRINE [Suspect]
     Indication: RASH
     Dosage: 150 MG
     Route: 048
     Dates: start: 20110501, end: 20110701
  3. AZATHIOPRINE [Suspect]
     Dosage: 200 MG
     Route: 048
     Dates: start: 20110701
  4. TIMOLOL MALEATE [Concomitant]
  5. VITAMIN D [Concomitant]
  6. BYSTOLIC [Suspect]
     Indication: HYPERTENSION

REACTIONS (2)
  - RASH [None]
  - DRUG INEFFECTIVE [None]
